FAERS Safety Report 23520414 (Version 1)
Quarter: 2024Q1

REPORT INFORMATION
  Report Type: Spontaneous
  Country: US (occurrence: US)
  Receive Date: 20240214
  Receipt Date: 20240214
  Transmission Date: 20240410
  Serious: No
  Sender: FDA-Public Use
  Company Number: US-ALMIRALL-US-2024-0239

PATIENT
  Age: 53 Year
  Sex: Female

DRUGS (1)
  1. KLISYRI [Suspect]
     Active Substance: TIRBANIBULIN
     Indication: Skin disorder
     Dates: start: 20240126

REACTIONS (2)
  - Application site erythema [Unknown]
  - Application site exfoliation [Unknown]

NARRATIVE: CASE EVENT DATE: 20240128
